FAERS Safety Report 21376572 (Version 1)
Quarter: 2022Q3

REPORT INFORMATION
  Report Type: Spontaneous
  Country: US (occurrence: None)
  Receive Date: 20220925
  Receipt Date: 20220925
  Transmission Date: 20221026
  Serious: Yes (Hospitalization)
  Sender: FDA-Public Use
  Company Number: None

PATIENT
  Age: 57 Year
  Sex: Female
  Weight: 38.1 kg

DRUGS (5)
  1. CAPECITABINE [Suspect]
     Active Substance: CAPECITABINE
     Indication: Breast cancer
     Dosage: FREQUENCY : TWICE A DAY;?
     Route: 048
     Dates: start: 20220819
  2. IBUPROFEN [Concomitant]
     Active Substance: IBUPROFEN
  3. HERCEPTIN [Concomitant]
     Active Substance: TRASTUZUMAB
  4. ONDANSETRON [Concomitant]
     Active Substance: ONDANSETRON
  5. TUKYSA [Concomitant]
     Active Substance: TUCATINIB

REACTIONS (2)
  - Gastrointestinal disorder [None]
  - Feeding disorder [None]

NARRATIVE: CASE EVENT DATE: 20220925
